FAERS Safety Report 9994353 (Version 1)
Quarter: 2014Q1

REPORT INFORMATION
  Report Type: Spontaneous
  Country: US (occurrence: US)
  Receive Date: 20140311
  Receipt Date: 20140311
  Transmission Date: 20141002
  Serious: No
  Sender: FDA-Public Use
  Company Number: US-GILEAD-2014-0096052

PATIENT
  Age: 56 Year
  Sex: Male

DRUGS (9)
  1. SOVALDI [Suspect]
     Indication: HEPATITIS C
     Dosage: 400 MG, UNK
     Route: 065
     Dates: start: 20140215
  2. RIBAVIRIN [Suspect]
     Indication: HEPATITIS C
     Dosage: UNK
     Route: 065
     Dates: start: 20140215
  3. PEGINTERFERON [Suspect]
     Indication: HEPATITIS C
     Dosage: UNK
     Route: 058
     Dates: start: 20140215
  4. COGENTIN [Concomitant]
  5. FLEXERIL                           /00428402/ [Concomitant]
  6. NITRO                              /00003201/ [Concomitant]
  7. PAXIL                              /00500401/ [Concomitant]
  8. RANITIDINE [Concomitant]
  9. ZYPREXA [Concomitant]

REACTIONS (1)
  - Drug screen positive [Unknown]
